FAERS Safety Report 6278417-2 (Version None)
Quarter: 2009Q3

REPORT INFORMATION
  Report Type: 
  Country: None (occurrence: None)
  Receive Date: 20090721
  Receipt Date: 20090707
  Transmission Date: 20100115
  Serious: Yes (Death)
  Sender: FDA-Public Use
  Company Number: MPS1-1000228

PATIENT
  Age: 21 Year
  Sex: Female
  Weight: 26 kg

DRUGS (4)
  1. ALDURAZYME [Suspect]
     Indication: MUCOPOLYSACCHARIDOSIS I
     Dosage: 100 IU/KG, ONCE, INTRAVENOUS
     Route: 042
     Dates: start: 20090429, end: 20090429
  2. LASIX [Concomitant]
  3. CAPTOPRIL [Concomitant]
  4. ASPIRIN [Concomitant]

REACTIONS (1)
  - CARDIAC FAILURE [None]
